FAERS Safety Report 4507785-4 (Version None)
Quarter: 2004Q4

REPORT INFORMATION
  Report Type: 
  Country: None (occurrence: None)
  Receive Date: 20041123
  Receipt Date: 20041116
  Transmission Date: 20050328
  Serious: Yes (Hospitalization)
  Sender: FDA-Public Use
  Company Number: US-JNJFOC-20041100316

PATIENT
  Age: 44 Year
  Sex: Male

DRUGS (1)
  1. DURAGESIC [Suspect]
     Indication: DRUG USE FOR UNKNOWN INDICATION
     Route: 062

REACTIONS (8)
  - BLOOD PRESSURE DECREASED [None]
  - COMA [None]
  - INTENTIONAL MISUSE [None]
  - NAUSEA [None]
  - RESPIRATORY RATE DECREASED [None]
  - SEDATION [None]
  - SYNCOPE [None]
  - THERAPEUTIC RESPONSE DECREASED [None]
